FAERS Safety Report 4578851-2 (Version None)
Quarter: 2005Q1

REPORT INFORMATION
  Report Type: 
  Country: None (occurrence: None)
  Receive Date: 20050211
  Receipt Date: 20050202
  Transmission Date: 20050727
  Serious: Yes (Hospitalization)
  Sender: FDA-Public Use
  Company Number: JP-BRISTOL-MYERS SQUIBB COMPANY-12852943

PATIENT
  Age: 74 Year
  Sex: Male

DRUGS (6)
  1. ENDOXAN [Suspect]
     Indication: LYMPHOMA
     Route: 048
     Dates: start: 20040101
  2. RITUXIMAB [Suspect]
     Indication: LYMPHOMA
     Dates: start: 20040101
  3. VINCRISTINE [Suspect]
     Indication: LYMPHOMA
     Dates: start: 20040101
  4. PREDNISOLONE [Suspect]
     Indication: LYMPHOMA
     Dates: start: 20040101
  5. TRIHEXYPHENIDYL HCL [Concomitant]
     Dates: start: 20040101
  6. PIRARUBICIN [Concomitant]
     Dates: start: 20040101

REACTIONS (3)
  - ABDOMINAL ADHESIONS [None]
  - PERFORATED ULCER [None]
  - SMALL INTESTINAL PERFORATION [None]
